FAERS Safety Report 16833661 (Version 1)
Quarter: 2019Q3

REPORT INFORMATION
  Report Type: Spontaneous
  Country: NL (occurrence: NL)
  Receive Date: 20190920
  Receipt Date: 20190920
  Transmission Date: 20191005
  Serious: Yes (Hospitalization)
  Sender: FDA-Public Use
  Company Number: NL-MYLANLABS-2019M1087889

PATIENT
  Age: 66 Year
  Sex: Male
  Weight: 61 kg

DRUGS (8)
  1. FLUCONAZOLE. [Suspect]
     Active Substance: FLUCONAZOLE
     Indication: URINARY TRACT INFECTION FUNGAL
     Dosage: 200 MILLIGRAM, QD, 1 DD 1 TBL.
     Route: 048
     Dates: start: 20190320, end: 20190325
  2. COLCHICINE. [Concomitant]
     Active Substance: COLCHICINE
     Dosage: UNK
  3. DOXAZOSINE                         /00639301/ [Concomitant]
     Active Substance: DOXAZOSIN MESYLATE
     Dosage: UNK
  4. OSVAREN [Concomitant]
     Active Substance: CALCIUM ACETATE\MAGNESIUM CARBONATE
     Dosage: UNK
  5. CELLCEPT [Concomitant]
     Active Substance: MYCOPHENOLATE MOFETIL\MYCOPHENOLATE MOFETIL HYDROCHLORIDE
     Dosage: UNK
  6. PREDNISOLON                        /00016201/ [Concomitant]
     Active Substance: PREDNISOLONE
     Dosage: UNK
  7. ALFACALCIDOL [Concomitant]
     Active Substance: ALFACALCIDOL
     Dosage: UNK
  8. BUMETANIDE. [Concomitant]
     Active Substance: BUMETANIDE
     Dosage: UNK

REACTIONS (5)
  - Sleep apnoea syndrome [Recovering/Resolving]
  - Nightmare [Recovering/Resolving]
  - Dyspnoea [Recovering/Resolving]
  - Nausea [Recovering/Resolving]
  - Ageusia [Recovering/Resolving]
